FAERS Safety Report 8617975 (Version 3)
Quarter: 2012Q4

REPORT INFORMATION
  Report Type: 
  Country: US (occurrence: US)
  Receive Date: 20120615
  Receipt Date: 20121118
  Transmission Date: 20130627
  Serious: Yes (Hospitalization, Other)
  Sender: FDA-Public Use
  Company Number: US-ROXANE LABORATORIES, INC.-2012-RO-01411RO

PATIENT
  Age: 3 Year
  Sex: Female

DRUGS (52)
  1. DEXAMETHASONE [Suspect]
     Indication: ACUTE LYMPHOCYTIC LEUKAEMIA
     Dosage: 7 mg
     Route: 048
     Dates: start: 20120416, end: 20120429
  2. DEXAMETHASONE [Suspect]
     Dosage: 15 mg
     Route: 048
     Dates: start: 20120724, end: 20120729
  3. DEXAMETHASONE [Suspect]
     Route: 048
     Dates: start: 20120814, end: 20120819
  4. DEXAMETHASONE [Suspect]
     Dosage: 10 mg
     Route: 048
     Dates: start: 20120905, end: 20120905
  5. DEXAMETHASONE [Suspect]
     Dosage: 15 mg
     Route: 048
     Dates: start: 20120906, end: 20120909
  6. DEXAMETHASONE [Suspect]
     Dosage: 5 mg
     Route: 048
     Dates: start: 20120910, end: 20120910
  7. DASATINIB [Suspect]
     Indication: ACUTE LYMPHOCYTIC LEUKAEMIA
     Dosage: 45 mg
     Route: 048
     Dates: start: 20120430
  8. DAUNORUBICIN [Suspect]
     Indication: ACUTE LYMPHOCYTIC LEUKAEMIA
     Route: 042
     Dates: start: 20120416, end: 20120430
  9. DAUNORUBICIN [Suspect]
     Dosage: 18 mg
     Route: 042
     Dates: start: 20120808
  10. METHOTREXATE [Suspect]
     Indication: ACUTE LYMPHOCYTIC LEUKAEMIA
     Dosage: 12 mg
     Route: 037
     Dates: start: 20120423, end: 20120423
  11. METHOTREXATE [Suspect]
     Dosage: 3195 mg
     Route: 042
     Dates: start: 20120724
  12. METHOTREXATE [Suspect]
     Dosage: 3500 mg
     Route: 042
     Dates: start: 20120814
  13. METHOTREXATE [Suspect]
     Dosage: 12 mg
     Route: 037
     Dates: start: 20120909, end: 20120909
  14. IFOSFAMIDE [Suspect]
     Indication: ACUTE LYMPHOCYTIC LEUKAEMIA
     Dosage: 1120 mg
     Route: 042
     Dates: start: 20120815, end: 20120817
  15. ETOPOSIDE [Suspect]
     Indication: ACUTE LYMPHOCYTIC LEUKAEMIA
     Dosage: 140 mg
     Route: 042
     Dates: start: 20120907, end: 20120909
  16. ETOPOSIDE [Suspect]
     Dosage: 70 mg
     Route: 042
     Dates: start: 20120909, end: 20120909
  17. CYCLOPHOSPHAMIDE [Suspect]
     Indication: ACUTE LYMPHOCYTIC LEUKAEMIA
     Dosage: 142 mg
     Route: 042
     Dates: start: 20120725, end: 20120727
  18. CYTARABINE [Suspect]
     Indication: ACUTE LYMPHOCYTIC LEUKAEMIA
     Dosage: 70 mg
     Route: 037
     Dates: start: 20120416, end: 20120909
  19. CYTARABINE [Suspect]
     Route: 042
     Dates: start: 20120728
  20. CYTARABINE [Suspect]
     Dosage: 30 mg
     Route: 037
     Dates: start: 20120814
  21. CYTARABINE [Suspect]
     Dosage: 2800 mg
     Route: 042
     Dates: start: 20120905, end: 20120906
  22. CYTARABINE [Suspect]
     Dosage: 30 mg
     Route: 037
     Dates: start: 20120909, end: 20120909
  23. L-ASPARAGINASE [Suspect]
     Indication: ACUTE LYMPHOCYTIC LEUKAEMIA
     Route: 042
     Dates: start: 20120729, end: 20120819
  24. VINCRISTINE [Suspect]
     Indication: ACUTE LYMPHOCYTIC LEUKAEMIA
     Route: 042
     Dates: start: 20120416, end: 20120819
  25. PEGASPARGASE [Suspect]
     Indication: ACUTE LYMPHOCYTIC LEUKAEMIA
     Dosage: 1775 U
     Route: 042
     Dates: start: 20120419, end: 20120419
  26. PEGASPARGASE [Suspect]
     Dosage: 1750 U
     Route: 042
     Dates: start: 20120820, end: 20120820
  27. PEGASPARGASE [Suspect]
     Dosage: 1750 U
     Dates: start: 20120910, end: 20120910
  28. HYDROCORTISONE [Suspect]
     Route: 037
     Dates: start: 20120724, end: 20120909
  29. HYDROCORTISONE [Suspect]
     Dosage: 12 mg
     Route: 037
     Dates: start: 20120909, end: 20120909
  30. NYSTATIN [Concomitant]
     Indication: ACUTE LYMPHOCYTIC LEUKAEMIA
     Dates: start: 20120422
  31. ZANTAC [Concomitant]
     Indication: ACUTE LYMPHOCYTIC LEUKAEMIA
     Dates: start: 20120416, end: 20120820
  32. ZOFRAN [Concomitant]
     Indication: ACUTE LYMPHOCYTIC LEUKAEMIA
     Dates: start: 20120430, end: 20120820
  33. FUROSEMIDE [Concomitant]
     Indication: ACUTE LYMPHOCYTIC LEUKAEMIA
     Dates: start: 20120427, end: 20120429
  34. BENADRYL [Concomitant]
     Dates: start: 20120424, end: 20120819
  35. FILGRASTIM [Concomitant]
     Dates: start: 20120730, end: 20120827
  36. LEUCOVORIN [Concomitant]
     Dates: start: 20120726, end: 20120816
  37. ATIVAN [Concomitant]
     Dates: start: 20120724, end: 20120819
  38. MAGIC MOUTHWASH [Concomitant]
     Dates: start: 20120801, end: 20120829
  39. NYSTATIN [Concomitant]
     Dates: start: 20120729, end: 20120830
  40. ONDANSETRON [Concomitant]
     Dates: start: 20120723, end: 20120730
  41. PREDNISOLONE [Concomitant]
     Dates: start: 20120728, end: 20120802
  42. SEPTRA [Concomitant]
     Dates: start: 201204
  43. KETAMINE [Concomitant]
     Dates: start: 20120724, end: 20120814
  44. VERSED [Concomitant]
     Dates: start: 20120724, end: 20120724
  45. VERSED [Concomitant]
     Dates: start: 20120814, end: 20120814
  46. MORPHINE [Concomitant]
     Dates: start: 20120804, end: 20120829
  47. MIRALAX [Concomitant]
     Dates: start: 20120729, end: 20120829
  48. MESNA [Concomitant]
     Dates: start: 20120815, end: 20120817
  49. HISTAMINE [Concomitant]
     Dates: start: 20120815, end: 20120817
  50. DIPHENHYDRAMINE [Concomitant]
     Dates: start: 20120814, end: 20120819
  51. LORAZEPAM [Concomitant]
     Dates: start: 20120814, end: 20120819
  52. SODIUM BICARBONATE [Concomitant]
     Dates: start: 20120814, end: 20120829

REACTIONS (7)
  - Neutropenia [Recovered/Resolved]
  - Device related infection [Recovered/Resolved]
  - Staphylococcal infection [Recovered/Resolved]
  - Escherichia bacteraemia [Recovered/Resolved]
  - Mucosal inflammation [Recovered/Resolved]
  - Febrile neutropenia [Recovered/Resolved]
  - Hypersensitivity [Recovered/Resolved]
